FAERS Safety Report 5531501-0 (Version None)
Quarter: 2007Q4

REPORT INFORMATION
  Report Type: 
  Country: None (occurrence: None)
  Receive Date: 20071128
  Receipt Date: 20071128
  Transmission Date: 20080405
  Serious: Yes (Other)
  Sender: FDA-Public Use
  Company Number: None

PATIENT
  Age: 49 Year
  Sex: Male
  Weight: 61.2356 kg

DRUGS (1)
  1. CHANTIX [Suspect]
     Indication: SMOKING CESSATION THERAPY
     Dosage: 1MG TWICE A DAY PO
     Route: 048
     Dates: start: 20070920, end: 20071121

REACTIONS (12)
  - ABNORMAL BEHAVIOUR [None]
  - AGGRESSION [None]
  - CHILD ABUSE [None]
  - COGNITIVE DISORDER [None]
  - EMOTIONAL DISORDER [None]
  - IMPAIRED WORK ABILITY [None]
  - IMPRISONMENT [None]
  - MARITAL PROBLEM [None]
  - MOOD SWINGS [None]
  - SPOUSAL ABUSE [None]
  - SUICIDAL IDEATION [None]
  - TREMOR [None]
